FAERS Safety Report 17464909 (Version 1)
Quarter: 2020Q1

REPORT INFORMATION
  Report Type: Spontaneous
  Country: US (occurrence: US)
  Receive Date: 20200226
  Receipt Date: 20200226
  Transmission Date: 20200409
  Serious: No
  Sender: FDA-Public Use
  Company Number: US-ROCHE-2405643

PATIENT
  Age: 75 Year
  Sex: Female

DRUGS (1)
  1. ALECENSA [Suspect]
     Active Substance: ALECTINIB HYDROCHLORIDE
     Indication: BRONCHIAL CARCINOMA
     Dosage: BY MOUTH
     Route: 048
     Dates: start: 20190301

REACTIONS (3)
  - Infrequent bowel movements [Unknown]
  - Abdominal pain upper [Unknown]
  - Dyschezia [Unknown]

NARRATIVE: CASE EVENT DATE: 20190501
